FAERS Safety Report 9830305 (Version 4)
Quarter: 2014Q1

REPORT INFORMATION
  Report Type: Spontaneous
  Country: US (occurrence: US)
  Receive Date: 20140120
  Receipt Date: 20140224
  Transmission Date: 20141002
  Serious: Yes (Death, Hospitalization, Other)
  Sender: FDA-Public Use
  Company Number: US-BAXTER-2014BAX002208

PATIENT
  Sex: Male

DRUGS (2)
  1. DIANEAL LOW CALCIUM [Suspect]
     Indication: PERITONEAL DIALYSIS
     Route: 033
     Dates: end: 20140121
  2. DIANEAL LOW CALCIUM [Suspect]
     Indication: PERITONEAL DIALYSIS
     Route: 033
     Dates: end: 20140121

REACTIONS (7)
  - Pneumonia [Fatal]
  - Sepsis [Fatal]
  - Post procedural infection [Fatal]
  - Renal failure [Fatal]
  - General physical health deterioration [Unknown]
  - Pulmonary oedema [Unknown]
  - Pleural adhesion [Unknown]
